FAERS Safety Report 9414955 (Version 2)
Quarter: 2013Q3

REPORT INFORMATION
  Report Type: Spontaneous
  Country: US (occurrence: US)
  Receive Date: 20130723
  Receipt Date: 20130828
  Transmission Date: 20140515
  Serious: Yes (Congenital Anomaly, Other)
  Sender: FDA-Public Use
  Company Number: US-PFIZER INC-2013211692

PATIENT
  Sex: Female

DRUGS (4)
  1. ZOLOFT [Suspect]
     Dosage: UNK
     Route: 064
     Dates: start: 1993
  2. SERTRALINE HCL [Suspect]
     Dosage: UNK
     Route: 064
     Dates: start: 1993
  3. ULTRA NATAL CARE TABLET [Concomitant]
     Dosage: UNK
     Route: 064
  4. ERY-TAB [Concomitant]
     Dosage: UNK
     Route: 064

REACTIONS (4)
  - Maternal exposure timing unspecified [Unknown]
  - Talipes [Unknown]
  - Foot deformity [Unknown]
  - Foot deformity [Unknown]
